APPROVED DRUG PRODUCT: RENESE
Active Ingredient: POLYTHIAZIDE
Strength: 4MG
Dosage Form/Route: TABLET;ORAL
Application: N012845 | Product #003
Applicant: PFIZER INC
Approved: Approved Prior to Jan 1, 1982 | RLD: No | RS: No | Type: DISCN